FAERS Safety Report 6548199-5 (Version None)
Quarter: 2010Q1

REPORT INFORMATION
  Report Type: 
  Country: None (occurrence: None)
  Receive Date: 20100124
  Receipt Date: 20090209
  Transmission Date: 20100710
  Serious: No
  Sender: FDA-Public Use
  Company Number: US-ALLERGAN-0901710US

PATIENT
  Age: 57 Year
  Sex: Female

DRUGS (4)
  1. RESTASIS [Suspect]
     Indication: DRY EYE
     Dosage: UNK, BID
     Route: 047
     Dates: start: 20081101
  2. FLAX SEED OIL [Concomitant]
     Indication: DRY EYE
  3. UNSPECIFIED EYE DROPS [Concomitant]
     Indication: DRY EYE
  4. ALLEGRA [Concomitant]
     Indication: DRUG USE FOR UNKNOWN INDICATION

REACTIONS (4)
  - DISORIENTATION [None]
  - DIZZINESS [None]
  - FEELING HOT [None]
  - SWELLING FACE [None]
